FAERS Safety Report 4884533-X (Version None)
Quarter: 2006Q1

REPORT INFORMATION
  Report Type: 
  Country: None (occurrence: None)
  Receive Date: 20060117
  Receipt Date: 20060110
  Transmission Date: 20060701
  Serious: Yes (Other)
  Sender: FDA-Public Use
  Company Number: 2006005708

PATIENT
  Age: 52 Year
  Sex: Female
  Weight: 63.5036 kg

DRUGS (4)
  1. LIPITOR [Suspect]
     Indication: BLOOD CHOLESTEROL
     Dosage: 10 MG (10 MG, 1 IN 1 D), ORAL
     Route: 048
     Dates: start: 20030501, end: 20040401
  2. LOVASTATIN [Suspect]
     Indication: BLOOD CHOLESTEROL
     Dates: end: 20051201
  3. SYNTHROID [Concomitant]
  4. ASPIRIN [Concomitant]

REACTIONS (1)
  - UNEVALUABLE EVENT [None]
